FAERS Safety Report 8262544-4 (Version None)
Quarter: 2012Q1

REPORT INFORMATION
  Report Type: 
  Country: None (occurrence: None)
  Receive Date: 20120321
  Receipt Date: 20110923
  Transmission Date: 20120608
  Serious: Yes (Other)
  Sender: FDA-Public Use
  Company Number: 2011SP045278

PATIENT
  Age: 53 Year
  Sex: Male

DRUGS (4)
  1. PEG-INTRON [Suspect]
     Indication: HEPATITIS C
     Dosage: 150 MCGP; QW; SC
     Route: 058
     Dates: start: 20100430, end: 20101009
  2. RIBAVIRIN [Suspect]
     Indication: HEPATITIS C
  3. VICODIN [Concomitant]
  4. VALIUM [Concomitant]

REACTIONS (8)
  - ARTHRALGIA [None]
  - JOINT SWELLING [None]
  - WEIGHT DECREASED [None]
  - FEELING ABNORMAL [None]
  - CONTUSION [None]
  - ASTHENIA [None]
  - VISION BLURRED [None]
  - MUSCLE SPASMS [None]
